FAERS Safety Report 6192106-4 (Version None)
Quarter: 2009Q2

REPORT INFORMATION
  Report Type: 
  Country: None (occurrence: None)
  Receive Date: 20090515
  Receipt Date: 20090514
  Transmission Date: 20091009
  Serious: Yes (Other)
  Sender: FDA-Public Use
  Company Number: US-BRISTOL-MYERS SQUIBB COMPANY-13257779

PATIENT
  Age: 68 Year
  Sex: Female
  Weight: 48 kg

DRUGS (5)
  1. ESTRACE [Suspect]
     Indication: MENOPAUSE
     Dates: start: 19921101, end: 19940401
  2. ESTRATAB [Suspect]
     Indication: MENOPAUSE
     Dates: start: 19910201, end: 19911001
  3. OGEN [Suspect]
     Indication: MENOPAUSE
     Dates: start: 19900201, end: 19920401
  4. PREMARIN [Suspect]
     Indication: MENOPAUSE
     Dates: start: 19760101, end: 19900101
  5. PROVERA [Suspect]
     Indication: MENOPAUSE
     Dates: start: 19760101

REACTIONS (1)
  - BREAST CANCER [None]
